FAERS Safety Report 9166995 (Version 3)
Quarter: 2013Q2

REPORT INFORMATION
  Report Type: Spontaneous
  Country: US (occurrence: US)
  Receive Date: 20130317
  Receipt Date: 20130419
  Transmission Date: 20140414
  Serious: Yes (Other)
  Sender: FDA-Public Use
  Company Number: US-UCBSA-080304

PATIENT
  Age: 34 Year
  Sex: Male
  Weight: 81.6 kg

DRUGS (1)
  1. CIMZIA [Suspect]
     Indication: CROHN^S DISEASE
     Route: 058
     Dates: start: 20110624, end: 2013

REACTIONS (2)
  - Fungal infection [Recovering/Resolving]
  - Abscess [Unknown]
